FAERS Safety Report 23627663 (Version 1)
Quarter: 2024Q1

REPORT INFORMATION
  Report Type: Spontaneous
  Country: US (occurrence: US)
  Receive Date: 20240313
  Receipt Date: 20240313
  Transmission Date: 20240409
  Serious: No
  Sender: FDA-Public Use
  Company Number: US-AYTU BIOPHARMA, INC.-2023AYT000015

PATIENT

DRUGS (1)
  1. METADATE CD [Suspect]
     Active Substance: METHYLPHENIDATE HYDROCHLORIDE
     Indication: Product used for unknown indication
     Dosage: 20 MILLIGRAM, QD
     Route: 065
     Dates: start: 2014

REACTIONS (3)
  - Impaired quality of life [Not Recovered/Not Resolved]
  - Drug ineffective [Unknown]
  - Drug tolerance [Unknown]
